FAERS Safety Report 5499420-6 (Version None)
Quarter: 2007Q4

REPORT INFORMATION
  Report Type: 
  Country: None (occurrence: None)
  Receive Date: 20071026
  Receipt Date: 20071019
  Transmission Date: 20080405
  Serious: Yes (Death)
  Sender: FDA-Public Use
  Company Number: B0492648A

PATIENT
  Age: 71 Year
  Sex: Male

DRUGS (13)
  1. AVANDIA [Suspect]
     Dosage: 4MG PER DAY
     Route: 048
     Dates: start: 20051018
  2. OXAZEPAM [Concomitant]
     Dosage: 10MG AS REQUIRED
     Route: 048
  3. SOTALOL HYDROCHLORIDE [Concomitant]
     Dosage: 40MG THREE TIMES PER DAY
     Route: 048
  4. TAMSULOSIN HYDROCHLORIDE [Concomitant]
     Dosage: .4MG PER DAY
     Route: 048
  5. ENALAPRIL MALEATE [Concomitant]
     Dosage: 10MG PER DAY
     Route: 048
  6. ACETYLSALICYLIC ACID SRT [Concomitant]
     Dosage: 80MG PER DAY
     Route: 048
  7. SIMVASTATIN [Concomitant]
     Dosage: 20MG PER DAY
     Route: 048
  8. METFORMIN HCL [Concomitant]
     Dosage: 500MG TWICE PER DAY
     Route: 048
  9. VIAGRA [Concomitant]
     Route: 048
  10. FUROSEMIDE [Concomitant]
     Dosage: 80MG PER DAY
     Route: 048
     Dates: start: 20070205
  11. AVODART [Concomitant]
     Dosage: .5MG PER DAY
     Route: 048
     Dates: start: 20070219
  12. BUMETANIDE [Concomitant]
     Dosage: 4MG PER DAY
     Route: 048
     Dates: start: 20070226
  13. AMOXICILLIN AND CLAVULANATE POTASSIUM [Concomitant]
     Dates: start: 20070209

REACTIONS (3)
  - CARDIAC ARREST [None]
  - FATIGUE [None]
  - INSOMNIA [None]
